FAERS Safety Report 6848588-5 (Version None)
Quarter: 2010Q3

REPORT INFORMATION
  Report Type: 
  Country: None (occurrence: None)
  Receive Date: 20100716
  Receipt Date: 20100713
  Transmission Date: 20110219
  Serious: Yes (Death, Hospitalization)
  Sender: FDA-Public Use
  Company Number: US-BRISTOL-MYERS SQUIBB COMPANY-15154438

PATIENT
  Age: 65 Year
  Sex: Male
  Weight: 96 kg

DRUGS (4)
  1. ERBITUX [Suspect]
     Indication: NON-SMALL CELL LUNG CANCER
     Dosage: NO OF COURSE=17. LAST DOSE ON 21JUN10
     Dates: start: 20100614, end: 20100621
  2. CARBOPLATIN [Suspect]
     Indication: NON-SMALL CELL LUNG CANCER
     Dosage: NO OF COURSE=16
     Dates: start: 20100607, end: 20100607
  3. TAXOL [Suspect]
     Indication: NON-SMALL CELL LUNG CANCER
     Dosage: NO OF COURSE=16
     Dates: start: 20100607, end: 20100607
  4. RADIATION THERAPY [Suspect]
     Indication: NON-SMALL CELL LUNG CANCER
     Dosage: DF=74 GY NO OF FRACTIONS=37 NO OF ELASPED DAYS=51
     Dates: start: 20100301, end: 20100427

REACTIONS (16)
  - ACUTE RESPIRATORY DISTRESS SYNDROME [None]
  - BONE MARROW FAILURE [None]
  - FEBRILE NEUTROPENIA [None]
  - GENERAL PHYSICAL HEALTH DETERIORATION [None]
  - HAEMOGLOBIN DECREASED [None]
  - NO THERAPEUTIC RESPONSE [None]
  - PLATELET COUNT DECREASED [None]
  - PNEUMONIA [None]
  - PNEUMONIA BACTERIAL [None]
  - PNEUMONIA NECROTISING [None]
  - PULMONARY CAVITATION [None]
  - PULMONARY EMBOLISM [None]
  - PULMONARY FISTULA [None]
  - SUBCUTANEOUS EMPHYSEMA [None]
  - THROMBOSIS [None]
  - WHITE BLOOD CELL COUNT DECREASED [None]
